FAERS Safety Report 12839300 (Version 1)
Quarter: 2016Q4

REPORT INFORMATION
  Report Type: Spontaneous
  Country: US (occurrence: US)
  Receive Date: 20161010
  Receipt Date: 20161010
  Transmission Date: 20170207
  Serious: Yes (Disabling, Other)
  Sender: FDA-Public Use
  Company Number: None

PATIENT
  Age: 37 Year
  Sex: Female
  Weight: 105.75 kg

DRUGS (15)
  1. LEVAQUIN [Suspect]
     Active Substance: LEVOFLOXACIN
     Indication: URINARY TRACT INFECTION
     Dosage: ?          QUANTITY:1 TABLET(S);?
     Route: 048
  2. LEVAQUIN [Suspect]
     Active Substance: LEVOFLOXACIN
     Indication: BLADDER DISORDER
     Dosage: ?          QUANTITY:1 TABLET(S);?
     Route: 048
  3. IBUPROFEN. [Concomitant]
     Active Substance: IBUPROFEN
  4. NAPROXEN. [Concomitant]
     Active Substance: NAPROXEN
  5. MINOFIDIL [Concomitant]
  6. CYMBALTA [Concomitant]
     Active Substance: DULOXETINE HYDROCHLORIDE
  7. TRIGGER POINT INJECTIONS [Concomitant]
     Active Substance: UNSPECIFIED INGREDIENT
  8. TENS UNIT [Concomitant]
  9. B12 INJECTIONS [Concomitant]
  10. TYLENOL [Concomitant]
     Active Substance: ACETAMINOPHEN
  11. SOMBRA ANALGESIC PAIN RELIEVER [Concomitant]
  12. FOLATE [Concomitant]
     Active Substance: FOLATE SODIUM
  13. CALCIUM [Concomitant]
     Active Substance: CALCIUM
  14. PHYSICAL THERAPY [Concomitant]
  15. BIOTIN [Concomitant]
     Active Substance: BIOTIN

REACTIONS (12)
  - Rash generalised [None]
  - Arthralgia [None]
  - Chronic fatigue syndrome [None]
  - Asthenia [None]
  - Impaired quality of life [None]
  - Fatigue [None]
  - Intracranial pressure increased [None]
  - Impaired work ability [None]
  - Lip blister [None]
  - Fibromyalgia [None]
  - Myalgia [None]
  - Neuropathy peripheral [None]

NARRATIVE: CASE EVENT DATE: 20060403
